FAERS Safety Report 7332516-2 (Version None)
Quarter: 2011Q1

REPORT INFORMATION
  Report Type: 
  Country: None (occurrence: None)
  Receive Date: 20110304
  Receipt Date: 20110302
  Transmission Date: 20110831
  Serious: Yes (Other)
  Sender: FDA-Public Use
  Company Number: GB-ROCHE-763136

PATIENT

DRUGS (1)
  1. ROACTEMRA [Suspect]
     Route: 065

REACTIONS (1)
  - PEPTIC ULCER [None]
